FAERS Safety Report 7077904-7 (Version None)
Quarter: 2010Q4

REPORT INFORMATION
  Report Type: 
  Country: None (occurrence: None)
  Receive Date: 20101101
  Receipt Date: 20101022
  Transmission Date: 20110411
  Serious: Yes (Death)
  Sender: FDA-Public Use
  Company Number: US-ELI_LILLY_AND_COMPANY-US201010005641

PATIENT
  Age: 65 Year
  Sex: Female

DRUGS (2)
  1. ALIMTA [Suspect]
     Indication: LUNG CANCER METASTATIC
     Dosage: 500 MG/M2, UNKNOWN
     Dates: start: 20101005
  2. CARBOPLATIN [Concomitant]
     Indication: LUNG CANCER METASTATIC
     Dosage: AUC 5, UNK
     Dates: start: 20101005, end: 20101005

REACTIONS (1)
  - DEATH [None]
